FAERS Safety Report 19173740 (Version 1)
Quarter: 2021Q2

REPORT INFORMATION
  Report Type: Spontaneous
  Country: US (occurrence: US)
  Receive Date: 20210423
  Receipt Date: 20210423
  Transmission Date: 20210717
  Serious: No
  Sender: FDA-Public Use
  Company Number: US-JNJFOC-20210433691

PATIENT
  Age: 39 Year
  Sex: Male

DRUGS (1)
  1. MENS ROGAINE EXTRA STRENGTH [Suspect]
     Active Substance: MINOXIDIL
     Indication: ALOPECIA
     Dosage: 1 ML PER DROPPER TWICE A DAY
     Route: 061
     Dates: start: 202103

REACTIONS (2)
  - Product use in unapproved indication [Unknown]
  - Product residue present [Unknown]

NARRATIVE: CASE EVENT DATE: 202103
